FAERS Safety Report 14154878 (Version 1)
Quarter: 2017Q4

REPORT INFORMATION
  Report Type: Spontaneous
  Country: US (occurrence: US)
  Receive Date: 20171103
  Receipt Date: 20171103
  Transmission Date: 20180321
  Serious: Yes (Other)
  Sender: FDA-Public Use
  Company Number: None

PATIENT
  Age: 37 Year
  Sex: Female
  Weight: 120.15 kg

DRUGS (3)
  1. PHENAZOPYRIDINE. [Suspect]
     Active Substance: PHENAZOPYRIDINE
     Indication: URINARY TRACT INFECTION
     Dosage: ?          QUANTITY:1 TABLET(S);?
     Route: 048
     Dates: start: 20171031, end: 20171101
  2. PRENATAL PILLS [Concomitant]
  3. PROGESTERONE CREAM [Concomitant]
     Active Substance: PROGESTERONE

REACTIONS (4)
  - Nightmare [None]
  - Depression [None]
  - Emotional disorder [None]
  - Mood swings [None]

NARRATIVE: CASE EVENT DATE: 20171101
